FAERS Safety Report 23466543 (Version 1)
Quarter: 2024Q1

REPORT INFORMATION
  Report Type: Spontaneous
  Country: US (occurrence: US)
  Receive Date: 20240201
  Receipt Date: 20240201
  Transmission Date: 20240410
  Serious: Yes (Life-Threatening, Hospitalization, Other)
  Sender: FDA-Public Use
  Company Number: US-ASTELLAS-2024EU000744

PATIENT
  Age: 84 Year
  Sex: Male

DRUGS (8)
  1. LEXISCAN [Suspect]
     Active Substance: REGADENOSON
     Indication: Scan myocardial perfusion
     Dosage: 0.4 MG, UNKNOWN FREQ. (INJECTED OVER 10-45 SECONDS)
     Route: 065
  2. LEXISCAN [Suspect]
     Active Substance: REGADENOSON
     Indication: Scan myocardial perfusion
     Dosage: 0.4 MG, UNKNOWN FREQ. (INJECTED OVER 10-45 SECONDS)
     Route: 065
  3. LEXISCAN [Suspect]
     Active Substance: REGADENOSON
     Indication: Scan myocardial perfusion
     Dosage: 0.4 MG, UNKNOWN FREQ. (INJECTED OVER 10-45 SECONDS)
     Route: 065
  4. LEXISCAN [Suspect]
     Active Substance: REGADENOSON
     Indication: Scan myocardial perfusion
     Dosage: 0.4 MG, UNKNOWN FREQ. (INJECTED OVER 10-45 SECONDS)
     Route: 065
  5. TECHNETIUM TC 99M TETROFOSMIN [Concomitant]
     Indication: Radioisotope scan
     Dosage: UNK UNK, UNKNOWN FREQ.
     Route: 065
  6. ATORVASTATIN [Concomitant]
     Active Substance: ATORVASTATIN
     Indication: Product used for unknown indication
     Dosage: UNK UNK, UNKNOWN FREQ.
     Route: 065
  7. MELATONIN [Concomitant]
     Active Substance: MELATONIN
     Indication: Product used for unknown indication
     Dosage: UNK UNK, UNKNOWN FREQ.
     Route: 065
  8. TRAZODONE [Concomitant]
     Active Substance: TRAZODONE HYDROCHLORIDE
     Indication: Product used for unknown indication
     Dosage: UNK UNK, UNKNOWN FREQ.
     Route: 065

REACTIONS (3)
  - Atrioventricular block complete [Recovered/Resolved]
  - Incorrect product administration duration [Unknown]
  - Off label use [Unknown]
